FAERS Safety Report 5863892-5 (Version None)
Quarter: 2008Q3

REPORT INFORMATION
  Report Type: 
  Country: None (occurrence: None)
  Receive Date: 20080829
  Receipt Date: 20080822
  Transmission Date: 20090109
  Serious: Yes (Hospitalization)
  Sender: FDA-Public Use
  Company Number: BE-JNJFOC-20080805453

PATIENT
  Sex: Male

DRUGS (3)
  1. REMICADE [Suspect]
     Indication: DRUG EXPOSURE DURING PREGNANCY
  2. BUDESONIDE [Concomitant]
     Indication: DRUG EXPOSURE DURING PREGNANCY
  3. SALAZOPYRINE [Concomitant]
     Indication: DRUG EXPOSURE DURING PREGNANCY

REACTIONS (3)
  - ANAEMIA NEONATAL [None]
  - MECONIUM IN AMNIOTIC FLUID [None]
  - PLACENTAL TRANSFUSION SYNDROME [None]
